FAERS Safety Report 7412449-3 (Version None)
Quarter: 2011Q2

REPORT INFORMATION
  Report Type: 
  Country: None (occurrence: None)
  Receive Date: 20110405
  Receipt Date: 20110317
  Transmission Date: 20111010
  Serious: Yes (Death)
  Sender: FDA-Public Use
  Company Number: 2011P1005302

PATIENT
  Age: 38 Year
  Sex: Male

DRUGS (17)
  1. ACETAMINOPHEN [Suspect]
     Dosage: ; PO
     Route: 048
  2. CITALOPRAM (NO PREF. NAME) [Suspect]
     Dosage: ; PO
     Route: 048
  3. VERAPAMIL [Suspect]
     Dosage: ; PO
     Route: 048
  4. PAROXETINE (NO PREF. NAME) [Suspect]
     Dosage: ; PO
     Route: 048
  5. METHYLERGONOVINE (NO PREF. NAME) [Suspect]
     Dosage: ; PO
     Route: 048
  6. BENZODIAZEPINE (UNSPECIFIED) (NO PREF. NAME) [Suspect]
     Dosage: ; PO
     Route: 048
  7. PHENYTOIN [Suspect]
     Dosage: ; PO
     Route: 048
  8. CYCLOBENAZPRINE [Suspect]
     Dosage: ; PO
     Route: 048
  9. PROCHLORPERAZINE [Suspect]
     Dosage: ; PO
     Route: 048
  10. ZOLPIDEM [Suspect]
     Dosage: ; PO
     Route: 048
  11. VALPROIC ACID [Suspect]
     Dosage: ; PO
     Route: 048
  12. BENZODIAZEPINE (NO PREF. NAME) [Suspect]
     Dosage: ; PO
     Route: 048
  13. ACETAMINOPHEN/DICHLORALPHENAZONE/ISOMETHEPTENE (NO PREF. NAME) [Suspect]
     Dosage: ; PO
     Route: 048
  14. BETA BLOCKER (UNSPECIFIED) (NO PREF. NAME) [Suspect]
     Dosage: ; PO
     Route: 048
  15. BETA BLOCKER (UNSPECIFIED) (NO PREF. NAME) [Suspect]
     Dosage: ; PO
     Route: 048
  16. QUETIAPINE [Suspect]
     Dosage: ; PO
     Route: 048
  17. ESZOCIPLONE [Suspect]
     Dosage: ; PO
     Route: 048

REACTIONS (1)
  - COMPLETED SUICIDE [None]
